FAERS Safety Report 8986881 (Version 2)
Quarter: 2013Q1

REPORT INFORMATION
  Report Type: Spontaneous
  Country: US (occurrence: US)
  Receive Date: 20121227
  Receipt Date: 20130116
  Transmission Date: 20140127
  Serious: No
  Sender: FDA-Public Use
  Company Number: US-BIOGENIDEC-2012BI061476

PATIENT
  Age: 61 Year
  Sex: Male

DRUGS (1)
  1. TYSABRI [Suspect]
     Indication: MULTIPLE SCLEROSIS
     Route: 042
     Dates: start: 20090930

REACTIONS (7)
  - Arthritis [Not Recovered/Not Resolved]
  - Local swelling [Unknown]
  - Device dislocation [Recovered/Resolved]
  - Cartilage atrophy [Not Recovered/Not Resolved]
  - Dyskinesia [Unknown]
  - Muscular weakness [Unknown]
  - Nasopharyngitis [Recovered/Resolved]
